FAERS Safety Report 6970020-1 (Version None)
Quarter: 2010Q3

REPORT INFORMATION
  Report Type: 
  Country: None (occurrence: None)
  Receive Date: 20100908
  Receipt Date: 20100902
  Transmission Date: 20110219
  Serious: No
  Sender: FDA-Public Use
  Company Number: US-TEVA-247391USA

PATIENT
  Sex: Male
  Weight: 71.278 kg

DRUGS (9)
  1. ALBUTEROL SULFATE AUTOHALER [Suspect]
     Indication: CHRONIC OBSTRUCTIVE PULMONARY DISEASE
     Route: 055
  2. ATORVASTATIN CALCIUM [Concomitant]
  3. DIAZEPAM [Concomitant]
  4. ATENOLOL [Concomitant]
  5. ALPRAZOLAM [Concomitant]
  6. CLOPIDOGREL [Concomitant]
  7. ACETYLSALICYLIC ACID [Concomitant]
     Route: 048
  8. MORNIFLUMATE [Concomitant]
     Indication: CHRONIC OBSTRUCTIVE PULMONARY DISEASE
  9. CLOTRIMAZOLE [Concomitant]
     Indication: CANDIDIASIS
     Route: 048

REACTIONS (2)
  - ORAL PAIN [None]
  - PARAESTHESIA ORAL [None]
